FAERS Safety Report 7823661-3 (Version None)
Quarter: 2011Q4

REPORT INFORMATION
  Report Type: 
  Country: None (occurrence: None)
  Receive Date: 20111019
  Receipt Date: 20111019
  Transmission Date: 20120403
  Serious: Yes (Hospitalization)
  Sender: FDA-Public Use
  Company Number: None

PATIENT
  Age: 68 Year
  Sex: Female
  Weight: 87.543 kg

DRUGS (1)
  1. EFFIENT [Suspect]
     Indication: CORONARY ARTERY DISEASE

REACTIONS (5)
  - PRESYNCOPE [None]
  - DUODENAL ULCER HAEMORRHAGE [None]
  - DYSPNOEA EXERTIONAL [None]
  - CHEST PAIN [None]
  - ASTHENIA [None]
